FAERS Safety Report 6088953-X (Version None)
Quarter: 2009Q1

REPORT INFORMATION
  Report Type: 
  Country: None (occurrence: None)
  Receive Date: 20090219
  Receipt Date: 20090210
  Transmission Date: 20090719
  Serious: Yes (Hospitalization)
  Sender: FDA-Public Use
  Company Number: 100#03#2009-00511

PATIENT
  Age: 89 Year
  Sex: Female

DRUGS (9)
  1. CARVEDILOL [Suspect]
     Indication: MYOCARDIAL ISCHAEMIA
     Dosage: ORAL
     Route: 048
     Dates: end: 20081022
  2. MANIDON 80 (VERAPAMIL) [Suspect]
     Indication: ATRIAL FIBRILLATION
     Dosage: 120 MG ORAL
     Route: 048
     Dates: start: 20080701, end: 20081022
  3. ENALAPRIL MALEATE [Suspect]
     Indication: HYPERTENSION
     Dosage: 5 MG ORAL
     Route: 048
     Dates: end: 20081022
  4. POTASSIUM ASCORBATE (POTASSIUM ASCORBATE) [Suspect]
     Indication: DRUG USE FOR UNKNOWN INDICATION
     Dosage: ORAL
     Route: 048
     Dates: end: 20081022
  5. FUROSEMIDE [Concomitant]
  6. ACETYLSALICYLIC ACID SRT [Concomitant]
  7. INSULIN BOVINE (INSULIN BOVINE) [Concomitant]
  8. SALBUTAMOL (SALBUTAMOL) [Concomitant]
  9. SODIUM BICARBONATE IN PLASTIC CONTAINER [Concomitant]

REACTIONS (2)
  - HYPERKALAEMIA [None]
  - NODAL RHYTHM [None]
